FAERS Safety Report 8564499-1 (Version None)
Quarter: 2012Q3

REPORT INFORMATION
  Report Type: 
  Country: None (occurrence: None)
  Receive Date: 20120803
  Receipt Date: 20120730
  Transmission Date: 20120928
  Serious: Yes (Other)
  Sender: FDA-Public Use
  Company Number: NL-PFIZER INC-2012185039

PATIENT
  Age: 73 Year
  Sex: Female

DRUGS (5)
  1. LEVOTHYROXINE SODIUM [Concomitant]
     Dosage: 0.125 MG, 1X/DAY
  2. INSULATARD NPH HUMAN [Concomitant]
     Dosage: 1 DF, 2X/DAY
  3. HUMALOG [Concomitant]
     Dosage: 1 DF, 2X/DAY
  4. ENALAPRIL [Concomitant]
     Dosage: 5 MG, 1X/DAY
  5. AROMASIN [Suspect]
     Dosage: 25 MG, UNK
     Dates: start: 20120721

REACTIONS (1)
  - HYPOGLYCAEMIA [None]
